FAERS Safety Report 16036330 (Version 1)
Quarter: 2019Q1

REPORT INFORMATION
  Report Type: Spontaneous
  Country: US (occurrence: US)
  Receive Date: 20190305
  Receipt Date: 20190305
  Transmission Date: 20190418
  Serious: No
  Sender: FDA-Public Use
  Company Number: US-ALLERGAN-1839332US

PATIENT
  Age: 60 Year
  Sex: Female

DRUGS (2)
  1. ESTRACE [Suspect]
     Active Substance: ESTRADIOL
     Indication: INADEQUATE LUBRICATION
  2. ESTRACE [Suspect]
     Active Substance: ESTRADIOL
     Indication: HORMONE THERAPY
     Dosage: UNK
     Route: 067
     Dates: start: 2017

REACTIONS (4)
  - Off label use [Unknown]
  - Vulvovaginal burning sensation [Recovered/Resolved]
  - Product formulation issue [Unknown]
  - Genital discomfort [Unknown]
